FAERS Safety Report 8211481-X (Version None)
Quarter: 2012Q1

REPORT INFORMATION
  Report Type: 
  Country: None (occurrence: None)
  Receive Date: 20120315
  Receipt Date: 20120312
  Transmission Date: 20120608
  Serious: Yes (Other)
  Sender: FDA-Public Use
  Company Number: US-PFIZER INC-2012041098

PATIENT
  Sex: Female
  Weight: 48.073 kg

DRUGS (7)
  1. AMIKACIN [Concomitant]
     Dosage: UNK
  2. AZITHROMYCIN [Concomitant]
     Dosage: 500 MG, UNK
  3. CELEBREX [Suspect]
     Indication: PAIN
     Dosage: 200 MG, 2X/DAY
     Route: 048
     Dates: start: 20120215, end: 20120221
  4. FORADIL [Concomitant]
     Dosage: UNK, 2X/DAY
  5. FLUTICASONE [Concomitant]
     Dosage: 50 MG, UNK
  6. CELEBREX [Suspect]
     Indication: LUMBAR SPINAL STENOSIS
  7. LANSOPRAZOLE [Concomitant]
     Dosage: UNK

REACTIONS (7)
  - GAIT DISTURBANCE [None]
  - DYSPEPSIA [None]
  - BALANCE DISORDER [None]
  - FLATULENCE [None]
  - HEADACHE [None]
  - DRUG INTOLERANCE [None]
  - DIZZINESS [None]
